FAERS Safety Report 20216847 (Version 2)
Quarter: 2022Q1

REPORT INFORMATION
  Report Type: Spontaneous
  Country: US (occurrence: US)
  Receive Date: 20211222
  Receipt Date: 20220108
  Transmission Date: 20220423
  Serious: Yes (Other)
  Sender: FDA-Public Use
  Company Number: US-LUPIN PHARMACEUTICALS INC.-2021-25060

PATIENT
  Age: 46 Year
  Sex: Female
  Weight: 68.038 kg

DRUGS (1)
  1. HYDROCHLOROTHIAZIDE\IRBESARTAN [Suspect]
     Active Substance: HYDROCHLOROTHIAZIDE\IRBESARTAN
     Indication: Hypertension
     Dosage: UNK UNK, QD (IRBESARTAN: 300MG, HYDROCHLOROTHIAZIDE: 25 MG )
     Route: 065
     Dates: start: 2017

REACTIONS (2)
  - Ovarian cancer [Unknown]
  - Uterine cancer [Unknown]

NARRATIVE: CASE EVENT DATE: 20210101
